FAERS Safety Report 4409735-8 (Version None)
Quarter: 2004Q3

REPORT INFORMATION
  Report Type: 
  Country: None (occurrence: None)
  Receive Date: 20040728
  Receipt Date: 20040706
  Transmission Date: 20050211
  Serious: Yes (Hospitalization)
  Sender: FDA-Public Use
  Company Number: 200416722GDDC

PATIENT
  Age: 56 Year
  Sex: Female

DRUGS (19)
  1. LASIX [Suspect]
     Dosage: DOSE: UNK
     Dates: start: 20020426, end: 20020601
  2. LEVOFLOXACIN [Suspect]
     Dosage: DOSE: UNK
     Dates: start: 20020517, end: 20020521
  3. TIENAM [Suspect]
     Dosage: DOSE: UNK
     Dates: start: 20020508, end: 20020516
  4. CLINDAMYCIN HCL [Suspect]
     Dosage: DOSE: UNK
     Dates: start: 20020508, end: 20020516
  5. LOXONIN [Suspect]
     Dosage: DOSE: UNK
     Dates: start: 20020506, end: 20020515
  6. HALOPERIDOL [Suspect]
     Dosage: DOSE: UNK
     Dates: start: 20020430, end: 20020519
  7. EURODIN [Suspect]
     Dosage: DOSE: UNK
     Dates: start: 20020517, end: 20020525
  8. GRAMALIL [Suspect]
     Dosage: DOSE: UNK
     Dates: start: 20020506, end: 20020521
  9. FOIPAN [Suspect]
     Dosage: DOSE: UNK
     Dates: start: 20020516, end: 20020521
  10. ATARAX [Suspect]
     Dosage: DOSE: UNK
     Dates: start: 20020506, end: 20020524
  11. GASTER [Suspect]
     Dosage: DOSE: UNK
     Dates: start: 20020426, end: 20020521
  12. MUCOSTA [Suspect]
     Dosage: DOSE: UNK
     Dates: start: 20020506, end: 20020515
  13. ALDACTONE-A [Suspect]
     Dosage: DOSE: UNK
     Dates: start: 20020515, end: 20020523
  14. MANNITOL [Suspect]
     Dosage: DOSE: UNK
     Dates: start: 20020428, end: 20020514
  15. NITROPEN [Suspect]
     Dosage: DOSE: UNK
     Dates: start: 20020515
  16. DIGOSIN [Suspect]
     Dosage: DOSE: UNK
     Dates: start: 20020512, end: 20020601
  17. 8-HOUR BAYER [Suspect]
     Dosage: DOSE: UNK
     Dates: start: 20020512, end: 20020523
  18. WARFARIN SODIUM [Suspect]
     Dosage: DOSE: UNK
     Dates: start: 20020512, end: 20020524
  19. SELBEX [Suspect]
     Dosage: DOSE: UNK
     Dates: start: 20020502, end: 20020522

REACTIONS (11)
  - BLOOD ALKALINE PHOSPHATASE INCREASED [None]
  - BLOOD CHLORIDE DECREASED [None]
  - BLOOD LACTATE DEHYDROGENASE INCREASED [None]
  - BLOOD POTASSIUM DECREASED [None]
  - BLOOD URIC ACID INCREASED [None]
  - HAEMATOCRIT DECREASED [None]
  - HAEMOGLOBIN DECREASED [None]
  - LIPASE INCREASED [None]
  - PLATELET COUNT INCREASED [None]
  - RED BLOOD CELL COUNT DECREASED [None]
  - TOXIC EPIDERMAL NECROLYSIS [None]
